FAERS Safety Report 5014012-0 (Version None)
Quarter: 2006Q2

REPORT INFORMATION
  Report Type: 
  Country: None (occurrence: None)
  Receive Date: 20060414
  Receipt Date: 20060130
  Transmission Date: 20061013
  Serious: No
  Sender: FDA-Public Use
  Company Number: 2006SP000503

PATIENT
  Age: 41 Year
  Sex: Male
  Weight: 92.0802 kg

DRUGS (2)
  1. LUNESTA [Suspect]
     Indication: INSOMNIA
     Dosage: 3 MG;HS;ORAL
     Route: 048
     Dates: start: 20060124, end: 20060125
  2. ATIVAN [Concomitant]

REACTIONS (4)
  - DIZZINESS [None]
  - DYSGEUSIA [None]
  - NAUSEA [None]
  - STOMACH DISCOMFORT [None]
